FAERS Safety Report 7841748-6 (Version None)
Quarter: 2011Q4

REPORT INFORMATION
  Report Type: 
  Country: None (occurrence: None)
  Receive Date: 20111025
  Receipt Date: 20111014
  Transmission Date: 20120403
  Serious: Yes (Other)
  Sender: FDA-Public Use
  Company Number: US-JNJFOC-20111008378

PATIENT
  Sex: Male
  Weight: 113.4 kg

DRUGS (14)
  1. FENTANYL-100 [Suspect]
     Route: 062
     Dates: start: 20090101
  2. TIZANIDINE HCL [Concomitant]
     Indication: MUSCLE SPASMS
     Route: 048
  3. ENALAPRIL MALEATE [Concomitant]
     Indication: BLOOD PRESSURE
     Dosage: 2-20MG TWICE DAILY
     Route: 048
  4. CHLOROTHIAZIDE [Concomitant]
     Indication: DIURETIC THERAPY
     Route: 048
  5. FENTANYL-100 [Suspect]
     Indication: NERVE DEGENERATION
     Route: 062
     Dates: end: 20110901
  6. BACLOFEN [Concomitant]
     Indication: MUSCLE SPASMS
     Route: 048
  7. FENTANYL-100 [Suspect]
     Indication: OSTEOARTHRITIS
     Route: 062
     Dates: start: 20110901
  8. FENTANYL-100 [Suspect]
     Indication: OSTEOARTHRITIS
     Route: 062
     Dates: end: 20110901
  9. UNKNOWN MEDICATION [Concomitant]
     Indication: INFLAMMATION
     Route: 048
  10. SIMVASTATIN [Concomitant]
     Indication: BLOOD CHOLESTEROL INCREASED
     Route: 048
  11. FENTANYL-100 [Suspect]
     Route: 062
     Dates: start: 20090101
  12. FENTANYL-100 [Suspect]
     Indication: NERVE DEGENERATION
     Route: 062
     Dates: start: 20110901
  13. ATENOLOL [Concomitant]
     Indication: BLOOD PRESSURE
     Route: 048
  14. POTASSIUM [Concomitant]
     Indication: SUPPLEMENTATION THERAPY
     Route: 048

REACTIONS (9)
  - MUSCLE SPASMS [None]
  - INCORRECT DRUG ADMINISTRATION DURATION [None]
  - PRODUCT QUALITY ISSUE [None]
  - HAND DEFORMITY [None]
  - DRUG DISPENSING ERROR [None]
  - FOOT DEFORMITY [None]
  - JOINT EFFUSION [None]
  - INSOMNIA [None]
  - EXPIRED DRUG ADMINISTERED [None]
